FAERS Safety Report 7515701-6 (Version None)
Quarter: 2011Q2

REPORT INFORMATION
  Report Type: 
  Country: None (occurrence: None)
  Receive Date: 20110601
  Receipt Date: 20110525
  Transmission Date: 20111010
  Serious: Yes (Life-Threatening, Other)
  Sender: FDA-Public Use
  Company Number: US-AMGEN-USASP2011000458

PATIENT
  Age: 14 Year
  Sex: Female
  Weight: 102.1 kg

DRUGS (3)
  1. FERROUS SULFATE TAB [Concomitant]
  2. NPLATE [Suspect]
     Indication: IDIOPATHIC THROMBOCYTOPENIC PURPURA
     Dosage: 600 A?G, QWK
     Route: 058
     Dates: start: 20110124, end: 20110317
  3. PREDNISONE [Concomitant]
     Dosage: 60 MG, BID
     Route: 048
     Dates: start: 20101202, end: 20101226

REACTIONS (10)
  - BLOOD SMEAR TEST ABNORMAL [None]
  - PURPURA [None]
  - THROMBOCYTOPENIA [None]
  - THERAPEUTIC RESPONSE DECREASED [None]
  - EPISTAXIS [None]
  - PETECHIAE [None]
  - BLOOD LACTATE DEHYDROGENASE INCREASED [None]
  - CONTUSION [None]
  - HEADACHE [None]
  - MENORRHAGIA [None]
